FAERS Safety Report 15496930 (Version 1)
Quarter: 2018Q4

REPORT INFORMATION
  Report Type: Spontaneous
  Country: CA (occurrence: CA)
  Receive Date: 20181015
  Receipt Date: 20181015
  Transmission Date: 20190205
  Serious: Yes (Other)
  Sender: FDA-Public Use
  Company Number: CA-ROCHE-2197224

PATIENT
  Sex: Male

DRUGS (1)
  1. LUCENTIS [Suspect]
     Active Substance: RANIBIZUMAB
     Indication: EYE INFECTION BACTERIAL
     Route: 065
     Dates: start: 20160610

REACTIONS (2)
  - Blindness unilateral [Unknown]
  - Product use in unapproved indication [Unknown]
